FAERS Safety Report 4423833-4 (Version None)
Quarter: 2004Q3

REPORT INFORMATION
  Report Type: 
  Country: None (occurrence: None)
  Receive Date: 20040715
  Receipt Date: 20031230
  Transmission Date: 20050211
  Serious: Yes (Other)
  Sender: FDA-Public Use
  Company Number: 2003192248US

PATIENT
  Sex: 0

DRUGS (1)
  1. DEPO-MEDROL [Suspect]
     Dosage: EPIDURAL
     Route: 008

REACTIONS (2)
  - MEDICATION ERROR [None]
  - MENINGITIS CHEMICAL [None]
